FAERS Safety Report 22038151 (Version 1)
Quarter: 2023Q1

REPORT INFORMATION
  Report Type: Spontaneous
  Country: US (occurrence: US)
  Receive Date: 20230227
  Receipt Date: 20230227
  Transmission Date: 20230417
  Serious: No
  Sender: FDA-Public Use
  Company Number: US-IGSA-BIG0019506

PATIENT
  Sex: Female
  Weight: 96 kg

DRUGS (27)
  1. PROLASTIN-C LIQUID [Suspect]
     Active Substance: .ALPHA.1-PROTEINASE INHIBITOR HUMAN
     Indication: Alpha-1 antitrypsin deficiency
     Dosage: 5760 MILLIGRAM, Q.WK.
     Route: 042
     Dates: start: 20191210
  2. ASPIRIN [Concomitant]
     Active Substance: ASPIRIN
  3. AZELASTINE [Concomitant]
     Active Substance: AZELASTINE
  4. CENTRUM JR [MINERALS NOS;VITAMINS NOS] [Concomitant]
  5. CITRUCEL [Concomitant]
     Active Substance: METHYLCELLULOSE (4000 MPA.S)
  6. CRANBERRY [Concomitant]
     Active Substance: CRANBERRY
  7. DULOXETINE [Concomitant]
     Active Substance: DULOXETINE
  8. FAMOTIDINE [Concomitant]
     Active Substance: FAMOTIDINE
  9. FISH OIL [Concomitant]
     Active Substance: FISH OIL
  10. GAVISCON ES [Concomitant]
  11. INDAPAMIDE [Concomitant]
     Active Substance: INDAPAMIDE
  12. LASIX [Concomitant]
     Active Substance: FUROSEMIDE
  13. LEVALBUTEROL HYDROCHLORIDE [Concomitant]
     Active Substance: LEVALBUTEROL HYDROCHLORIDE
  14. LOSARTAN [Concomitant]
     Active Substance: LOSARTAN
  15. LUMIGAN [Concomitant]
     Active Substance: BIMATOPROST
  16. MELOXICAM [Concomitant]
     Active Substance: MELOXICAM
  17. METFORMIN [Concomitant]
     Active Substance: METFORMIN HYDROCHLORIDE
  18. METOPROLOL [Concomitant]
     Active Substance: METOPROLOL
  19. MONTELUKAST [Concomitant]
     Active Substance: MONTELUKAST SODIUM
  20. MUCINEX [Concomitant]
     Active Substance: GUAIFENESIN
  21. NOVOLOG [Concomitant]
     Active Substance: INSULIN ASPART
  22. PANTOPRAZOLE [Concomitant]
     Active Substance: PANTOPRAZOLE
  23. PROAIR HFA [Concomitant]
     Active Substance: ALBUTEROL SULFATE
  24. RESTASIS [Concomitant]
     Active Substance: CYCLOSPORINE
  25. SYMBICORT [Concomitant]
     Active Substance: BUDESONIDE\FORMOTEROL FUMARATE DIHYDRATE
  26. VERAPAMIL [Concomitant]
     Active Substance: VERAPAMIL HYDROCHLORIDE
  27. VITAMIN D3 [Concomitant]
     Active Substance: CHOLECALCIFEROL

REACTIONS (1)
  - Hypertonic bladder [Unknown]
